FAERS Safety Report 4394707-2 (Version None)
Quarter: 2004Q3

REPORT INFORMATION
  Report Type: 
  Country: None (occurrence: None)
  Receive Date: 20040706
  Receipt Date: 20040624
  Transmission Date: 20050211
  Serious: Yes (Hospitalization)
  Sender: FDA-Public Use
  Company Number: HQWYE211003JUN04

PATIENT
  Age: 24 Year
  Sex: Female
  Weight: 72.64 kg

DRUGS (1)
  1. NORPLANT SYSTEM [Suspect]
     Indication: CONTRACEPTION
     Dosage: 6 CAPSULES, SUBCUTANEOUS0428220
     Route: 058
     Dates: start: 19930428, end: 19950908

REACTIONS (24)
  - ABDOMINAL PAIN LOWER [None]
  - ALOPECIA [None]
  - APPLICATION SITE PIGMENTATION CHANGES [None]
  - APPLICATION SITE SCAR [None]
  - BREAST DISCOMFORT [None]
  - BREAST SWELLING [None]
  - CHEST PAIN [None]
  - COMPLICATION OF DEVICE REMOVAL [None]
  - DEPRESSION [None]
  - DYSPNOEA [None]
  - ECTOPIC PREGNANCY [None]
  - FALLOPIAN TUBE CYST [None]
  - HEADACHE [None]
  - HEPATOMEGALY [None]
  - HYSTEROSALPINGO-OOPHORECTOMY [None]
  - METRORRHAGIA [None]
  - NAUSEA [None]
  - OEDEMA PERIPHERAL [None]
  - OLIGOMENORRHOEA [None]
  - OVARIAN CYST [None]
  - OVARIAN ENLARGEMENT [None]
  - PAIN IN EXTREMITY [None]
  - VISUAL DISTURBANCE [None]
  - WEIGHT INCREASED [None]
